FAERS Safety Report 9994945 (Version 2)
Quarter: 2014Q3

REPORT INFORMATION
  Report Type: Spontaneous
  Country: US (occurrence: US)
  Receive Date: 20140311
  Receipt Date: 20140820
  Transmission Date: 20150326
  Serious: Yes (Hospitalization, Other)
  Sender: FDA-Public Use
  Company Number: US-BAYER-2014-036012

PATIENT
  Age: 27 Year
  Sex: Female
  Weight: 116 kg

DRUGS (4)
  1. AMOXICLAV [Concomitant]
     Active Substance: AMOXICILLIN\CLAVULANIC ACID
     Dosage: 875/125 MG ONE TAB TWICE DAILY X 14 DAYS
     Dates: start: 20040223
  2. METHYLPREDNISOLONE [Concomitant]
     Active Substance: METHYLPREDNISOLONE
     Dosage: 4 MG, UNK
     Dates: start: 20040223
  3. HYDROCODONE W/IBUPROFEN [Concomitant]
     Active Substance: HYDROCODONE\HYDROCODONE BITARTRATE\IBUPROFEN
     Dosage: 7.5/200 MG ONE TAB EVERY 4 HOURS
     Dates: start: 20040224
  4. YASMIN [Suspect]
     Active Substance: DROSPIRENONE\ETHINYL ESTRADIOL
     Dosage: UNK
     Route: 048
     Dates: start: 200309, end: 200403

REACTIONS (8)
  - General physical health deterioration [None]
  - Abdominal pain [None]
  - Pulmonary embolism [None]
  - Emotional distress [None]
  - Injury [None]
  - Anxiety [None]
  - Chest pain [None]
  - Pain [None]

NARRATIVE: CASE EVENT DATE: 200403
